FAERS Safety Report 5532891-5 (Version None)
Quarter: 2007Q4

REPORT INFORMATION
  Report Type: 
  Country: None (occurrence: None)
  Receive Date: 20071119
  Receipt Date: 20071001
  Transmission Date: 20080405
  Serious: No
  Sender: FDA-Public Use
  Company Number: TPA2007A02016

PATIENT
  Sex: Male

DRUGS (4)
  1. ROZEREM [Suspect]
     Indication: INSOMNIA
     Dosage: 8 MG, QHS, PER ORAL
     Route: 048
     Dates: start: 20070927, end: 20070930
  2. LORAZEPAM [Suspect]
  3. TEMAZEPAM [Suspect]
  4. ESTAZOLAM [Suspect]
     Dosage: 1/2 TAB

REACTIONS (4)
  - FEELING ABNORMAL [None]
  - HANGOVER [None]
  - POOR QUALITY SLEEP [None]
  - SOMNOLENCE [None]
